FAERS Safety Report 9790582 (Version 2)
Quarter: 2014Q1

REPORT INFORMATION
  Report Type: Report from Study
  Country: JP (occurrence: JP)
  Receive Date: 20131231
  Receipt Date: 20140128
  Transmission Date: 20141002
  Serious: Yes (Death, Hospitalization)
  Sender: FDA-Public Use
  Company Number: JP-FRI-1000052480

PATIENT
  Sex: Male

DRUGS (6)
  1. MEMANTINE [Suspect]
     Indication: DEMENTIA ALZHEIMER^S TYPE
     Dosage: 5 MG
     Route: 048
     Dates: start: 20120124, end: 20120130
  2. MEMANTINE [Suspect]
     Dosage: 10 MG
     Route: 048
     Dates: start: 20120131, end: 20120206
  3. MEMANTINE [Suspect]
     Dosage: 15 MG
     Route: 048
     Dates: start: 20120207, end: 20120213
  4. MEMANTINE [Suspect]
     Dosage: 20 MG
     Route: 048
     Dates: start: 20120214, end: 20120719
  5. ARICEPT ODT [Concomitant]
     Route: 048
     Dates: start: 200808, end: 20120719
  6. YOKUKANSAN [Concomitant]
     Route: 048
     Dates: start: 20090401, end: 20120719

REACTIONS (2)
  - Nasopharyngitis [Recovered/Resolved]
  - Death [Fatal]
